FAERS Safety Report 4630040-9 (Version None)
Quarter: 2005Q2

REPORT INFORMATION
  Report Type: 
  Country: None (occurrence: None)
  Receive Date: 20050408
  Receipt Date: 20050318
  Transmission Date: 20051028
  Serious: Yes (Death)
  Sender: FDA-Public Use
  Company Number: JP-ROCHE-399565

PATIENT
  Age: 52 Year
  Sex: Male

DRUGS (9)
  1. TAMIFLU [Suspect]
     Route: 048
     Dates: start: 20050309, end: 20050309
  2. FLEROXACIN [Concomitant]
     Indication: DRUG USE FOR UNKNOWN INDICATION
     Dosage: DRUG NAME REPORTED AS ^FULMICOCIN^
     Route: 048
     Dates: start: 20050309, end: 20050309
  3. LEUCOMYCIN [Concomitant]
     Indication: DRUG USE FOR UNKNOWN INDICATION
     Route: 048
     Dates: start: 20050309, end: 20050309
  4. TIARAMIDE HYDROCHLORIDE [Concomitant]
     Indication: DRUG USE FOR UNKNOWN INDICATION
     Dosage: DRUG NAME REPORTED AS ^CORENSOUL^
     Route: 048
     Dates: start: 20050309, end: 20050309
  5. SERRAPEPTASE [Concomitant]
     Indication: DRUG USE FOR UNKNOWN INDICATION
     Dosage: DRUG NAME REPORTED AS ^OMSEN^
     Route: 048
     Dates: start: 20050309, end: 20050309
  6. TRIMETOQUINOL HYDROCHLORIDE [Concomitant]
     Indication: DRUG USE FOR UNKNOWN INDICATION
     Dosage: DRUG NAME REPORTED AS ^TOSMERIAN^
     Route: 048
     Dates: start: 20050309, end: 20050309
  7. FAMOTIDINE [Concomitant]
     Indication: DRUG USE FOR UNKNOWN INDICATION
     Dosage: DRUG NAME REPORTED AS ^GASPORT^
     Route: 048
     Dates: start: 20050309, end: 20050309
  8. CARVEDILOL [Concomitant]
     Indication: DRUG USE FOR UNKNOWN INDICATION
     Dosage: DRUG NAME REPORTED AS ^ATENOTE^
     Route: 048
     Dates: start: 20050309, end: 20050309
  9. PRELONE [Concomitant]
     Indication: DRUG USE FOR UNKNOWN INDICATION
     Route: 048
     Dates: start: 20050309, end: 20050309

REACTIONS (7)
  - CARDIO-RESPIRATORY ARREST [None]
  - CORONARY ARTERY ATHEROSCLEROSIS [None]
  - DEATH [None]
  - DRUG HYPERSENSITIVITY [None]
  - DYSPNOEA [None]
  - PNEUMONIA [None]
  - THERAPY NON-RESPONDER [None]
